FAERS Safety Report 9737470 (Version 1)
Quarter: 2013Q4

REPORT INFORMATION
  Report Type: Spontaneous
  Country: FR (occurrence: FR)
  Receive Date: 20131206
  Receipt Date: 20131206
  Transmission Date: 20140711
  Serious: Yes (Death, Hospitalization)
  Sender: FDA-Public Use
  Company Number: FR-ASTRAZENECA-2013SE88999

PATIENT
  Age: 23617 Day
  Sex: Female

DRUGS (13)
  1. INEXIUM [Suspect]
     Route: 048
  2. ARICEPT [Suspect]
     Indication: DEMENTIA
     Route: 048
  3. PREVISCAN [Suspect]
     Indication: ATRIAL FIBRILLATION
     Dosage: DOSAGE FOR AN INR BETWEEN 2 AND 3
     Route: 048
  4. TAHOR [Suspect]
     Indication: HYPERCHOLESTEROLAEMIA
     Route: 048
  5. EBIXA [Suspect]
     Indication: DEMENTIA
     Route: 048
  6. MIANSERINE [Suspect]
     Route: 048
  7. RISPERDAL [Suspect]
     Route: 048
  8. TAREG [Suspect]
     Indication: HYPERTENSION
     Route: 048
  9. LASILIX [Suspect]
     Indication: HYPERTENSION
     Route: 048
  10. CARDENSIEL [Suspect]
     Indication: HYPERTENSION
     Route: 048
  11. LANTUS [Suspect]
     Dosage: 100 IU/ML
     Route: 058
  12. ZYLORIC [Suspect]
     Indication: HYPERURICAEMIA
     Route: 048
  13. NOVORAPID [Concomitant]

REACTIONS (13)
  - Subdural haematoma [Fatal]
  - General physical health deterioration [Unknown]
  - Cognitive disorder [Unknown]
  - Weaning failure [Unknown]
  - Haemodynamic instability [Unknown]
  - Electrocardiogram QT prolonged [Unknown]
  - Sepsis [Unknown]
  - Pneumonia aspiration [Unknown]
  - Acute respiratory distress syndrome [Unknown]
  - Dysphagia [Unknown]
  - Grand mal convulsion [Unknown]
  - Heart rate decreased [Unknown]
  - Somnolence [Unknown]
